FAERS Safety Report 5373335-6 (Version None)
Quarter: 2007Q2

REPORT INFORMATION
  Report Type: 
  Country: None (occurrence: None)
  Receive Date: 20070628
  Receipt Date: 20070627
  Transmission Date: 20071010
  Serious: Yes (Death, Hospitalization)
  Sender: FDA-Public Use
  Company Number: FR-BRISTOL-MYERS SQUIBB COMPANY-13823315

PATIENT
  Age: 60 Year
  Sex: Male
  Weight: 104 kg

DRUGS (5)
  1. ABILIFY [Suspect]
     Route: 048
     Dates: start: 20060922
  2. ANAFRANIL [Concomitant]
     Route: 048
     Dates: start: 20060609
  3. CORDARONE [Concomitant]
     Route: 048
  4. LORAZEPAM [Concomitant]
     Route: 048
     Dates: start: 20060407
  5. THERALENE [Concomitant]
     Route: 048
     Dates: start: 20060609

REACTIONS (2)
  - DYSPNOEA [None]
  - PULMONARY OEDEMA [None]
